FAERS Safety Report 8191793-9 (Version None)
Quarter: 2012Q1

REPORT INFORMATION
  Report Type: 
  Country: None (occurrence: None)
  Receive Date: 20120307
  Receipt Date: 20120302
  Transmission Date: 20120608
  Serious: Yes (Other)
  Sender: FDA-Public Use
  Company Number: US-PFIZER INC-2012057101

PATIENT
  Sex: Male
  Weight: 95.238 kg

DRUGS (1)
  1. VIAGRA [Suspect]
     Indication: ERECTILE DYSFUNCTION
     Dosage: 200 MG, DAILY
     Route: 048
     Dates: start: 20110315

REACTIONS (4)
  - HERPES VIRUS INFECTION [None]
  - MALARIA [None]
  - SEXUALLY TRANSMITTED DISEASE [None]
  - CIRCUMSTANCE OR INFORMATION CAPABLE OF LEADING TO MEDICATION ERROR [None]
